FAERS Safety Report 8449995-X (Version None)
Quarter: 2012Q2

REPORT INFORMATION
  Report Type: 
  Country: None (occurrence: None)
  Receive Date: 20120620
  Receipt Date: 20120618
  Transmission Date: 20120825
  Serious: Yes (Hospitalization, Disabling, Other)
  Sender: FDA-Public Use
  Company Number: PHEH2011US00492

PATIENT
  Sex: Male

DRUGS (9)
  1. METOPROLOL SUCCINATE [Concomitant]
  2. FLOMOX [Concomitant]
  3. GABAPENTIN [Concomitant]
  4. ZOMETA [Suspect]
     Route: 042
     Dates: end: 20090901
  5. NOVOLOG [Concomitant]
  6. ATENOLOL [Concomitant]
     Dosage: 25 MG, ONCE/SINGLE
  7. TORSEMIDE [Concomitant]
     Dosage: 20 MG,  DAILY
  8. COUMADIN [Concomitant]
  9. INSULIN [Concomitant]

REACTIONS (57)
  - DEHYDRATION [None]
  - FACET JOINT SYNDROME [None]
  - BENIGN NEOPLASM OF ADRENAL GLAND [None]
  - OSTEOARTHRITIS [None]
  - CEREBRAL ATROPHY [None]
  - HAEMOPTYSIS [None]
  - NEUROPATHY PERIPHERAL [None]
  - OSTEOSCLEROSIS [None]
  - DYSPNOEA [None]
  - ANXIETY [None]
  - DIABETES MELLITUS [None]
  - HEPATIC CYST [None]
  - EYE DISCHARGE [None]
  - SPONDYLOLISTHESIS [None]
  - THYROID NEOPLASM [None]
  - SKIN ULCER [None]
  - ONYCHOMYCOSIS [None]
  - CERVICAL CORD COMPRESSION [None]
  - OSTEOPENIA [None]
  - SACROILIITIS [None]
  - OSTEONECROSIS OF JAW [None]
  - ADRENAL ADENOMA [None]
  - HEPATIC LESION [None]
  - HYDRONEPHROSIS [None]
  - CORONARY ARTERY DISEASE [None]
  - ATRIAL FIBRILLATION [None]
  - SEPSIS [None]
  - DEFORMITY [None]
  - INTERVERTEBRAL DISC DEGENERATION [None]
  - RENAL FAILURE CHRONIC [None]
  - PERIPHERAL ARTERY ANEURYSM [None]
  - HYPERLIPIDAEMIA [None]
  - ONYCHALGIA [None]
  - INJURY [None]
  - METASTASES TO BONE [None]
  - LIPOMA [None]
  - INTERVERTEBRAL DISC PROTRUSION [None]
  - URINARY TRACT INFECTION [None]
  - SPINAL DISORDER [None]
  - PAIN [None]
  - DISCOMFORT [None]
  - HYPERTENSION [None]
  - LYMPHADENOPATHY [None]
  - MYELOMALACIA [None]
  - BLADDER OUTLET OBSTRUCTION [None]
  - FALL [None]
  - URINARY RETENTION [None]
  - RENAL CYST [None]
  - OBSTRUCTIVE UROPATHY [None]
  - DIABETIC NEUROPATHY [None]
  - DYSPHAGIA [None]
  - PROSTATE CANCER [None]
  - LUNG NEOPLASM [None]
  - OSTEOMYELITIS [None]
  - RADICULOPATHY [None]
  - ARTHRITIS [None]
  - DIABETIC FOOT [None]
